APPROVED DRUG PRODUCT: METOCLOPRAMIDE HYDROCHLORIDE
Active Ingredient: METOCLOPRAMIDE HYDROCHLORIDE
Strength: EQ 10MG BASE
Dosage Form/Route: TABLET;ORAL
Application: A072639 | Product #001
Applicant: CLONMEL HEALTHCARE
Approved: May 9, 1991 | RLD: No | RS: No | Type: DISCN